FAERS Safety Report 15977490 (Version 3)
Quarter: 2019Q1

REPORT INFORMATION
  Report Type: Spontaneous
  Country: JP (occurrence: JP)
  Receive Date: 20190218
  Receipt Date: 20190320
  Transmission Date: 20190418
  Serious: No
  Sender: FDA-Public Use
  Company Number: PHJP2019JP001650

PATIENT
  Age: 55 Year
  Sex: Female

DRUGS (7)
  1. COSENTYX [Suspect]
     Active Substance: SECUKINUMAB
     Dosage: 300 MG, UNK
     Route: 058
     Dates: end: 201801
  2. METHOTREXATE. [Concomitant]
     Active Substance: METHOTREXATE
     Dosage: 6 MG, UNK
     Route: 065
     Dates: start: 201804
  3. COSENTYX [Suspect]
     Active Substance: SECUKINUMAB
     Dosage: 300 MG, UNK
     Route: 058
     Dates: start: 20180304, end: 20190309
  4. METHOTREXATE. [Concomitant]
     Active Substance: METHOTREXATE
     Indication: PSORIATIC ARTHROPATHY
     Dosage: UNK
     Route: 065
     Dates: start: 201604
  5. POLAPREZINC [Concomitant]
     Active Substance: POLAPREZINC
     Indication: ZINC DEFICIENCY
     Dosage: UNK
     Route: 065
     Dates: start: 20190309
  6. COSENTYX [Suspect]
     Active Substance: SECUKINUMAB
     Indication: PSORIATIC ARTHROPATHY
     Dosage: 300 MG, UNK
     Route: 058
     Dates: start: 20160801
  7. HUMIRA [Concomitant]
     Active Substance: ADALIMUMAB
     Indication: PSORIATIC ARTHROPATHY
     Dosage: UNK
     Route: 065
     Dates: start: 201801, end: 201803

REACTIONS (3)
  - Tongue disorder [Recovered/Resolved]
  - Parosmia [Unknown]
  - Dysgeusia [Unknown]

NARRATIVE: CASE EVENT DATE: 20190205
